FAERS Safety Report 7490739-6 (Version None)
Quarter: 2011Q2

REPORT INFORMATION
  Report Type: 
  Country: None (occurrence: None)
  Receive Date: 20110519
  Receipt Date: 20080827
  Transmission Date: 20111010
  Serious: Yes (Death, Hospitalization, Other)
  Sender: FDA-Public Use
  Company Number: US-BAYER-200839750NA

PATIENT
  Age: 68 Year
  Sex: Female
  Weight: 50 kg

DRUGS (42)
  1. AVANDIA [Concomitant]
     Indication: DIABETES MELLITUS
     Dosage: UNK
     Route: 048
     Dates: start: 20040101
  2. PROTAMINE SULFATE [Concomitant]
  3. SUFENTA PRESERVATIVE FREE [Concomitant]
     Dosage: 150 ?G, UNK
     Route: 042
  4. EPHEDRINE [Concomitant]
     Dosage: 20 MG, UNK
     Route: 042
  5. PLASMA [Concomitant]
     Dosage: 4 U, UNK
     Route: 042
     Dates: start: 20060619
  6. TRASYLOL [Suspect]
     Indication: TRICUSPID VALVE REPAIR
  7. LIPITOR [Concomitant]
     Route: 048
  8. LEVAQUIN [Concomitant]
     Indication: UPPER RESPIRATORY TRACT INFECTION
     Dosage: UNK
     Route: 048
     Dates: start: 20060419, end: 20060619
  9. HEPARIN [Concomitant]
  10. ALBUMIN (HUMAN) [Concomitant]
     Dosage: 100 ML, UNK
  11. ETOMIDATE [Concomitant]
     Route: 042
  12. VECURONIUM BROMIDE [Concomitant]
     Route: 042
  13. PROPOFOL [Concomitant]
     Route: 042
  14. AUGMENTIN [Concomitant]
     Indication: UPPER RESPIRATORY TRACT INFECTION
     Dosage: UNK
     Dates: end: 20060419
  15. PLASMA [Concomitant]
     Dosage: 2 U, UNK
     Route: 042
     Dates: start: 20060619
  16. LASIX [Concomitant]
     Dosage: 40 MG, UNK
     Route: 048
  17. REGLAN [Concomitant]
     Dosage: 10 MG, UNK
     Route: 042
  18. NEO-SYNEPHRINOL [Concomitant]
     Route: 042
  19. PLATELETS [Concomitant]
     Dosage: 3 U, UNK
     Route: 042
     Dates: start: 20060619
  20. TRASYLOL [Suspect]
     Indication: AORTIC VALVE REPLACEMENT
     Dosage: 200 ML, UNK
     Route: 042
     Dates: start: 20060619
  21. TRASYLOL [Suspect]
     Indication: MITRAL VALVE REPLACEMENT
  22. COUMADIN [Concomitant]
     Dosage: 7.5 MG, UNK
     Route: 048
     Dates: start: 20040101
  23. LANTUS [Concomitant]
     Indication: DIABETES MELLITUS
     Dosage: 8 U, QD
     Route: 058
  24. CEFAZOLIN [Concomitant]
     Indication: PREOPERATIVE CARE
     Dosage: 2 G, UNK
  25. FORANE [Concomitant]
     Indication: INDUCTION AND MAINTENANCE OF ANAESTHESIA
     Dosage: INHALANT
  26. VERSED [Concomitant]
     Dosage: 10 MG, UNK
     Route: 042
  27. KETAMINE HCL [Concomitant]
     Dosage: 30 MG, UNK
     Route: 042
  28. BLOOD TRANSFUSION, AUXILIARY PRODUCTS [Concomitant]
     Dosage: 2 U, UNK
     Route: 042
     Dates: start: 20060619
  29. STARLIX [Concomitant]
     Indication: DIABETES MELLITUS
     Dosage: UNK
     Route: 048
     Dates: start: 20050101
  30. GLYBURIDE [Concomitant]
     Route: 048
  31. ADVAIR DISKUS 100/50 [Concomitant]
  32. XOPENEX [Concomitant]
     Dosage: 1 TO 2 PUFFS, INHALER
     Dates: start: 20060619
  33. MILRINONE [Concomitant]
     Dosage: 4 MG, UNK
     Route: 042
  34. DOPAMINE HCL [Concomitant]
  35. RED BLOOD CELLS [Concomitant]
     Dosage: 3 U, UNK
     Route: 042
     Dates: start: 20060619
  36. POTASSIUM CHLORIDE [Concomitant]
     Dosage: UNK
     Route: 048
     Dates: start: 20050101
  37. DDAVP [Concomitant]
  38. SOLU-CORTEF [Concomitant]
     Dosage: 2 G, UNK
     Route: 042
  39. PLATELETS [Concomitant]
     Dosage: 10 U, UNK
     Route: 042
     Dates: start: 20060619, end: 20060619
  40. PLATELETS [Concomitant]
     Dosage: 2 U, UNK
     Route: 042
     Dates: start: 20060619
  41. PLASMA [Concomitant]
     Dosage: 2 U, UNK
     Route: 042
  42. CRYOPRECIPITATES [Concomitant]
     Dosage: 10 U, UNK
     Dates: start: 20060619

REACTIONS (7)
  - DEATH [None]
  - PAIN [None]
  - RENAL FAILURE [None]
  - CARDIAC VALVE DISEASE [None]
  - INJURY [None]
  - UNEVALUABLE EVENT [None]
  - ANHEDONIA [None]
